FAERS Safety Report 7048386-6 (Version None)
Quarter: 2010Q4

REPORT INFORMATION
  Report Type: 
  Country: None (occurrence: None)
  Receive Date: 20101015
  Receipt Date: 20101015
  Transmission Date: 20110411
  Serious: Yes (Other)
  Sender: FDA-Public Use
  Company Number: None

PATIENT
  Sex: Female
  Weight: 65.7716 kg

DRUGS (3)
  1. OCTAGAM [Suspect]
     Indication: BLOOD IMMUNOGLOBULIN A DECREASED
     Dosage: 30 GM MONTHLY IVIG
     Route: 042
     Dates: start: 20100809
  2. BENADRYL [Suspect]
     Indication: HYPERSENSITIVITY
     Dosage: 25 MG MONTHLY IV
     Route: 042
     Dates: start: 20100801
  3. BENADRYL [Suspect]
     Indication: PROPHYLAXIS
     Dosage: 25 MG MONTHLY IV
     Route: 042
     Dates: start: 20100801

REACTIONS (6)
  - DYSARTHRIA [None]
  - FEELING ABNORMAL [None]
  - GAIT DISTURBANCE [None]
  - HYPOAESTHESIA ORAL [None]
  - POOR QUALITY DRUG ADMINISTERED [None]
  - PRODUCT QUALITY ISSUE [None]
